FAERS Safety Report 8490643-0 (Version None)
Quarter: 2012Q3

REPORT INFORMATION
  Report Type: 
  Country: None (occurrence: None)
  Receive Date: 20120705
  Receipt Date: 20120626
  Transmission Date: 20120928
  Serious: Yes (Other)
  Sender: FDA-Public Use
  Company Number: PL-CELGENEUS-129-C5013-12053546

PATIENT
  Sex: Male
  Weight: 92 kg

DRUGS (8)
  1. LENALIDOMIDE [Suspect]
     Dosage: 7.5 MILLIGRAM
     Route: 048
     Dates: start: 20120529
  2. DICLOFENAC SODIUM [Concomitant]
     Dosage: 150 MILLIGRAM
     Route: 048
     Dates: start: 20120320, end: 20120502
  3. BUDESONIDUM [Concomitant]
     Indication: TINNITUS
     Dosage: .1 MILLIGRAM
     Route: 048
     Dates: start: 20120403
  4. CUTIVATE [Concomitant]
     Indication: ERYTHEMA
     Dosage: 30 GRAM
     Route: 061
     Dates: start: 20120331, end: 20120502
  5. CIRRUS [Concomitant]
     Indication: TINNITUS
     Dosage: 240 MILLIGRAM
     Route: 048
     Dates: start: 20120403
  6. ENOXAPARIN SODIUM [Concomitant]
     Route: 065
  7. CLOTRIMAZOL [Concomitant]
     Indication: ERYTHEMA
     Dosage: 45 MILLIGRAM
     Route: 061
     Dates: start: 20120331, end: 20120502
  8. LENALIDOMIDE [Suspect]
     Dosage: 7.5 MILLIGRAM
     Route: 048
     Dates: start: 20100507

REACTIONS (1)
  - BASAL CELL CARCINOMA [None]
